FAERS Safety Report 8946844 (Version 1)
Quarter: 2012Q4

REPORT INFORMATION
  Report Type: 
  Country: US (occurrence: US)
  Receive Date: 20121205
  Receipt Date: 20121205
  Transmission Date: 20130627
  Serious: Yes (Other)
  Sender: FDA-Public Use
  Company Number: CHPA2012US024056

PATIENT

DRUGS (1)
  1. EXCEDRIN MIGRAINE [Suspect]
     Dosage: Unk, Unk

REACTIONS (2)
  - Medication overuse headache [Unknown]
  - Drug dependence [Unknown]
